FAERS Safety Report 18686499 (Version 3)
Quarter: 2021Q1

REPORT INFORMATION
  Report Type: Spontaneous
  Country: CA (occurrence: CA)
  Receive Date: 20201230
  Receipt Date: 20210312
  Transmission Date: 20210419
  Serious: Yes (Other)
  Sender: FDA-Public Use
  Company Number: CA-CELLTRION INC.-2020CA034661

PATIENT

DRUGS (5)
  1. INFLECTRA [Suspect]
     Active Substance: INFLIXIMAB-DYYB
     Dosage: 300 MG, EVERY 4 WEEKS
     Route: 042
     Dates: start: 20201222
  2. INFLECTRA [Suspect]
     Active Substance: INFLIXIMAB-DYYB
     Dosage: 300 MG, EVERY 4 WEEKS
     Route: 042
     Dates: start: 20210119
  3. INFLECTRA [Suspect]
     Active Substance: INFLIXIMAB-DYYB
     Indication: COLITIS ULCERATIVE
     Dosage: 300 MG, EVERY 4 WEEKS
     Route: 042
     Dates: start: 20200821
  4. INFLECTRA [Suspect]
     Active Substance: INFLIXIMAB-DYYB
     Dosage: 300 MG, EVERY 4 WEEKS
     Route: 042
     Dates: start: 20210216
  5. INFLECTRA [Suspect]
     Active Substance: INFLIXIMAB-DYYB
     Dosage: 300 MG, EVERY 4 WEEKS
     Route: 042
     Dates: start: 20201126

REACTIONS (15)
  - Condition aggravated [Unknown]
  - Drug specific antibody [Unknown]
  - Varices oesophageal [Unknown]
  - Off label use [Unknown]
  - Therapeutic product effect incomplete [Unknown]
  - Pancytopenia [Unknown]
  - Dysphagia [Unknown]
  - Intentional product use issue [Unknown]
  - Abdominal pain lower [Unknown]
  - Product use issue [Unknown]
  - Urinary tract infection [Unknown]
  - Drug level below therapeutic [Unknown]
  - Discomfort [Unknown]
  - Drug level below therapeutic [Unknown]
  - Tooth infection [Unknown]

NARRATIVE: CASE EVENT DATE: 2020
